FAERS Safety Report 24301445 (Version 1)
Quarter: 2024Q3

REPORT INFORMATION
  Report Type: Spontaneous
  Country: US (occurrence: None)
  Receive Date: 20240910
  Receipt Date: 20240910
  Transmission Date: 20241017
  Serious: No
  Sender: ASTRAZENECA
  Company Number: 2024A204312

PATIENT
  Age: 48 Year
  Sex: Female
  Weight: 86.6 kg

DRUGS (1)
  1. LYNPARZA [Suspect]
     Active Substance: OLAPARIB
     Indication: Ovarian cancer stage III
     Route: 048

REACTIONS (2)
  - Anxiety disorder [Unknown]
  - Depression [Unknown]
